FAERS Safety Report 9401515 (Version 3)
Quarter: 2014Q1

REPORT INFORMATION
  Report Type: Spontaneous
  Country: US (occurrence: US)
  Receive Date: 20130716
  Receipt Date: 20140314
  Transmission Date: 20141002
  Serious: Yes (Hospitalization, Other)
  Sender: FDA-Public Use
  Company Number: US-AMGEN-USASP2013048366

PATIENT
  Age: 78 Year
  Sex: Female
  Weight: 69.39 kg

DRUGS (14)
  1. ENBREL [Suspect]
     Indication: RHEUMATOID ARTHRITIS
     Dosage: 50 MG, QWK
     Route: 058
  2. PREDNISONE [Concomitant]
     Dosage: 7 MG, QD
     Route: 048
  3. PLAVIX [Concomitant]
     Dosage: 7 MG, QD
     Route: 048
  4. ASPIRIN [Concomitant]
     Dosage: 81 MG, QD
     Route: 048
  5. VITAMIN-C [Concomitant]
     Dosage: UNK
  6. SYNTHROID [Concomitant]
     Dosage: 0.025 MG, QD
     Route: 048
  7. ZOCOR [Concomitant]
     Dosage: 20 MG, QD
     Route: 048
  8. TOPROL [Concomitant]
     Dosage: 25 MG, QD
     Route: 048
  9. TRAMADOL [Concomitant]
     Dosage: UNK
  10. COUMADIN                           /00014802/ [Concomitant]
     Dosage: UNK
  11. LIBRIUM                            /00011501/ [Concomitant]
     Dosage: 25 MG, QHS
     Route: 048
  12. LASIX                              /00032601/ [Concomitant]
     Dosage: 10 MG, QD
     Route: 048
  13. ALENDRONATE [Concomitant]
     Dosage: 70 MG, QWK
     Route: 048
  14. POTASSIUM [Concomitant]
     Dosage: 8 MG, QD
     Route: 048

REACTIONS (9)
  - Cardiac pacemaker insertion [Recovered/Resolved]
  - Stent placement [Recovered/Resolved]
  - Loss of consciousness [Recovered/Resolved]
  - Cardiac murmur [Unknown]
  - Neck pain [Recovered/Resolved]
  - Pain in extremity [Not Recovered/Not Resolved]
  - Limb discomfort [Not Recovered/Not Resolved]
  - Musculoskeletal discomfort [Not Recovered/Not Resolved]
  - Renal function test abnormal [Unknown]
